FAERS Safety Report 7002444-0 (Version None)
Quarter: 2010Q3

REPORT INFORMATION
  Report Type: 
  Country: None (occurrence: None)
  Receive Date: 20100920
  Receipt Date: 20100913
  Transmission Date: 20110219
  Serious: Yes (Life-Threatening, Hospitalization, Other)
  Sender: FDA-Public Use
  Company Number: DE-CEPHALON-2010004972

PATIENT
  Sex: Female
  Weight: 58 kg

DRUGS (5)
  1. TREANDA [Suspect]
     Indication: MULTIPLE MYELOMA
     Route: 042
     Dates: start: 20100809, end: 20100810
  2. PREDNISOLONE [Concomitant]
     Dates: start: 20100809, end: 20100812
  3. PAMIDRONATE DISODIUM [Concomitant]
  4. DESFERAL [Concomitant]
  5. CEFTRIAXON [Concomitant]

REACTIONS (3)
  - BRONCHOPNEUMONIA [None]
  - LIVER DISORDER [None]
  - PANCYTOPENIA [None]
